FAERS Safety Report 6349503-3 (Version None)
Quarter: 2009Q3

REPORT INFORMATION
  Report Type: 
  Country: None (occurrence: None)
  Receive Date: 20090911
  Receipt Date: 20090828
  Transmission Date: 20100115
  Serious: Yes (Other)
  Sender: FDA-Public Use
  Company Number: US-ROCHE-644449

PATIENT
  Sex: Female
  Weight: 52.2 kg

DRUGS (2)
  1. PEGASYS [Suspect]
     Indication: HEPATITIS C
     Dosage: FORM: PRE-FILLED SYRINGE
     Route: 030
     Dates: start: 20090522
  2. RIBAPAK [Suspect]
     Indication: HEPATITIS C
     Dosage: IN DIVIDED DOSES
     Route: 048
     Dates: start: 20090522

REACTIONS (3)
  - EAR DISCOMFORT [None]
  - HYPOACUSIS [None]
  - TINNITUS [None]
